FAERS Safety Report 9544303 (Version 1)
Quarter: 2013Q3

REPORT INFORMATION
  Report Type: Spontaneous
  Country: CN (occurrence: CN)
  Receive Date: 20130923
  Receipt Date: 20130923
  Transmission Date: 20140515
  Serious: Yes (Other)
  Sender: FDA-Public Use
  Company Number: CN-PFIZER INC-2013269541

PATIENT
  Age: 35 Year
  Sex: Male
  Weight: 62.5 kg

DRUGS (2)
  1. CYTOSAR [Suspect]
     Indication: LYMPHOMA
     Dosage: 1.7 G, 2X/DAY (EVERY 12 HOURS)
     Route: 041
     Dates: start: 20120216, end: 20120216
  2. METHOTREXATE [Suspect]
     Dosage: 3.48 G, UNK
     Dates: start: 20120215

REACTIONS (2)
  - Tumour lysis syndrome [Recovering/Resolving]
  - Hypoaesthesia [Unknown]
